FAERS Safety Report 15885217 (Version 4)
Quarter: 2022Q1

REPORT INFORMATION
  Report Type: Spontaneous
  Country: US (occurrence: US)
  Receive Date: 20190129
  Receipt Date: 20220110
  Transmission Date: 20220424
  Serious: No
  Sender: FDA-Public Use
  Company Number: US-VIFOR (INTERNATIONAL) INC.-VIT-2019-00410

PATIENT
  Age: 71 Year
  Sex: Female
  Weight: 113.95 kg

DRUGS (16)
  1. VELTASSA [Suspect]
     Active Substance: PATIROMER
     Indication: Hyperkalaemia
     Route: 048
     Dates: start: 20160217
  2. DILTIAZEM HYDROCHLORIDE [Concomitant]
     Active Substance: DILTIAZEM HYDROCHLORIDE
  3. ALLOPURINOL [Concomitant]
     Active Substance: ALLOPURINOL
  4. ATENOLOL [Concomitant]
     Active Substance: ATENOLOL
  5. CRESTOR [Concomitant]
     Active Substance: ROSUVASTATIN CALCIUM
  6. DEPAKOTE [Concomitant]
     Active Substance: DIVALPROEX SODIUM
  7. JANUVIA [Concomitant]
     Active Substance: SITAGLIPTIN PHOSPHATE
  8. FERROUS GLUCONATE [Concomitant]
     Active Substance: FERROUS GLUCONATE
  9. FISH OIL [Concomitant]
     Active Substance: FISH OIL
  10. LANTUS [Concomitant]
     Active Substance: INSULIN GLARGINE
  11. LEVEMIR [Concomitant]
     Active Substance: INSULIN DETEMIR
  12. LISINOPRIL [Concomitant]
     Active Substance: LISINOPRIL
  13. MULTAQ [Concomitant]
     Active Substance: DRONEDARONE
  14. TYLENOL [Concomitant]
     Active Substance: ACETAMINOPHEN
  15. XARELTO [Concomitant]
     Active Substance: RIVAROXABAN
  16. NOVOLOG [Concomitant]
     Active Substance: INSULIN ASPART

REACTIONS (4)
  - Headache [Not Recovered/Not Resolved]
  - Vaccination complication [Unknown]
  - Nasopharyngitis [Unknown]
  - Product dose omission issue [Not Recovered/Not Resolved]

NARRATIVE: CASE EVENT DATE: 20190101
